FAERS Safety Report 16304460 (Version 5)
Quarter: 2019Q2

REPORT INFORMATION
  Report Type: Spontaneous
  Country: US (occurrence: US)
  Receive Date: 20190513
  Receipt Date: 20190618
  Transmission Date: 20190711
  Serious: No
  Sender: FDA-Public Use
  Company Number: US-PFIZER INC-2019199493

PATIENT
  Age: 82 Year
  Sex: Female
  Weight: 41.28 kg

DRUGS (8)
  1. BREO ELLIPTA [Concomitant]
     Active Substance: FLUTICASONE FUROATE\VILANTEROL TRIFENATATE
     Indication: LUNG DISORDER
     Dosage: 100 MG, DAILY
     Route: 055
  2. VFEND [Suspect]
     Active Substance: VORICONAZOLE
     Dosage: 300 MG, DAILY (TOOK 100MG IN MORNING, AND 200MG AT NIGHT, BY MOUTH EVERYDAY)
     Route: 048
     Dates: start: 201901
  3. SPIRIVA [Concomitant]
     Active Substance: TIOTROPIUM BROMIDE MONOHYDRATE
     Indication: LUNG DISORDER
     Dosage: 5 UG, 1X/DAY (INHALATION DOSES AT ONE TIME ONCE DAILY)
     Route: 055
  4. VFEND [Suspect]
     Active Substance: VORICONAZOLE
     Indication: FUNGAL INFECTION
     Dosage: 100 MG, DAILY (MORNING)
  5. VFEND [Suspect]
     Active Substance: VORICONAZOLE
     Dosage: UNK
  6. ALBUTEROL SULFATE. [Concomitant]
     Active Substance: ALBUTEROL SULFATE
     Indication: LUNG DISORDER
     Dosage: UNK, DAILY (ONE DOSAGE VIA INHALER ONE PUFF DAILY WITH APPARATUS TO HOLD MEDICATION TO BE INHALED)
  7. VFEND [Suspect]
     Active Substance: VORICONAZOLE
     Indication: LUNG INFECTION
     Dosage: 200 MG, DAILY (AT NIGHT)
  8. VFEND [Suspect]
     Active Substance: VORICONAZOLE
     Dosage: 100 MG IN THE MORNING
     Dates: start: 201901

REACTIONS (8)
  - Gastric disorder [Unknown]
  - Body height decreased [Unknown]
  - Loss of personal independence in daily activities [Unknown]
  - Drug ineffective [Unknown]
  - Off label use [Unknown]
  - Intentional product use issue [Unknown]
  - Balance disorder [Not Recovered/Not Resolved]
  - Dizziness [Not Recovered/Not Resolved]
